FAERS Safety Report 15647987 (Version 1)
Quarter: 2018Q4

REPORT INFORMATION
  Report Type: Spontaneous
  Country: US (occurrence: US)
  Receive Date: 20181122
  Receipt Date: 20181122
  Transmission Date: 20190205
  Serious: No
  Sender: FDA-Public Use
  Company Number: US-SA-2018SA320078

PATIENT
  Sex: Male

DRUGS (1)
  1. GOLD BOND MEDICATED PAIN AND ITCH RELIEF [Suspect]
     Active Substance: LIDOCAINE HYDROCHLORIDE
     Indication: SKIN IRRITATION
     Dosage: UNK
     Route: 065
     Dates: start: 20181119

REACTIONS (2)
  - Application site pain [Unknown]
  - Condition aggravated [Unknown]
